FAERS Safety Report 22188360 (Version 1)
Quarter: 2023Q2

REPORT INFORMATION
  Report Type: Spontaneous
  Country: US (occurrence: None)
  Receive Date: 20230408
  Receipt Date: 20230408
  Transmission Date: 20230722
  Serious: No
  Sender: FDA-Public Use
  Company Number: 2023A064596

PATIENT
  Sex: Male
  Weight: 111 kg

DRUGS (1)
  1. FARXIGA [Suspect]
     Active Substance: DAPAGLIFLOZIN PROPANEDIOL
     Indication: Cardiac failure
     Dosage: DOSE UNKNOWN UNKNOWN
     Route: 048

REACTIONS (2)
  - Product use issue [Unknown]
  - Urinary tract infection [Unknown]
